FAERS Safety Report 5132488-5 (Version None)
Quarter: 2006Q4

REPORT INFORMATION
  Report Type: 
  Country: None (occurrence: None)
  Receive Date: 20061017
  Receipt Date: 20061009
  Transmission Date: 20070319
  Serious: Yes (Other)
  Sender: FDA-Public Use
  Company Number: S06-FRA-03792-01

PATIENT
  Age: 48 Year
  Sex: Female
  Weight: 75 kg

DRUGS (8)
  1. SEROPLEX (ESCITALOPRAM) [Suspect]
     Indication: ANXIETY
     Dosage: 5 MG QD PO
     Route: 048
     Dates: start: 20051226, end: 20060123
  2. SEROPLEX (ESCITALOPRAM) [Suspect]
     Indication: DEPRESSION
     Dosage: 5 MG QD PO
     Route: 048
     Dates: start: 20051226, end: 20060123
  3. ZOPICLONE (ZOPICLONE) [Suspect]
     Indication: INSOMNIA
     Dosage: 7.5 MG QD PO
     Route: 048
     Dates: start: 20051226, end: 20060122
  4. INEXUM [Concomitant]
  5. STAGID (METFORMIN EMBONATE) [Concomitant]
  6. FORZAAR [Concomitant]
  7. AMLODIPINE BESYLATE [Concomitant]
  8. BISOPROLOL FUMARATE [Concomitant]

REACTIONS (5)
  - ANTEROGRADE AMNESIA [None]
  - HALLUCINATION, AUDITORY [None]
  - MENTAL DISORDER [None]
  - NERVOUS SYSTEM DISORDER [None]
  - SUICIDE ATTEMPT [None]
